FAERS Safety Report 8294705-2 (Version None)
Quarter: 2012Q2

REPORT INFORMATION
  Report Type: 
  Country: None (occurrence: None)
  Receive Date: 20120418
  Receipt Date: 20120411
  Transmission Date: 20120825
  Serious: Yes (Other)
  Sender: FDA-Public Use
  Company Number: SE-VERTEX PHARMACEUTICALS INC.-000000000000000296

PATIENT
  Sex: Female

DRUGS (3)
  1. RIBAVIRIN [Concomitant]
     Indication: HEPATITIS C
     Dosage: DOSAGE FORM: UNSPECIFIED
     Route: 065
  2. PEGINTERFERON ALFA [Concomitant]
     Indication: HEPATITIS C
     Dosage: DOSAGE FORM: UNSPECIFIED
     Route: 065
  3. INCIVO (TELAPREVIR) [Suspect]
     Indication: HEPATITIS C
     Dosage: DOSAGE FORM: TABLET
     Route: 048

REACTIONS (14)
  - PRURITUS [None]
  - DISTURBANCE IN ATTENTION [None]
  - GENITAL PAIN [None]
  - HEADACHE [None]
  - DYSGEUSIA [None]
  - ORAL PAIN [None]
  - ABDOMINAL PAIN [None]
  - RASH GENERALISED [None]
  - HAEMOGLOBIN DECREASED [None]
  - CONSTIPATION [None]
  - INTESTINAL HAEMORRHAGE [None]
  - NAUSEA [None]
  - FATIGUE [None]
  - STRESS [None]
